FAERS Safety Report 8679298 (Version 3)
Quarter: 2012Q4

REPORT INFORMATION
  Report Type: 
  Country: DE (occurrence: DE)
  Receive Date: 20120724
  Receipt Date: 20121031
  Transmission Date: 20130627
  Serious: Yes (Hospitalization, Other)
  Sender: FDA-Public Use
  Company Number: PHHY2012DE062434

PATIENT
  Age: 59 Year
  Sex: Female
  Weight: 65 kg

DRUGS (3)
  1. ZOMETA [Suspect]
     Indication: OSTEOPOROSIS
     Dosage: 4 mg, every 6 months
     Route: 042
     Dates: start: 200908, end: 201110
  2. FEMARA [Suspect]
     Indication: BREAST CANCER
     Dosage: 2.5 mg, UNK
     Route: 048
     Dates: start: 200911
  3. MALARONE [Concomitant]
     Indication: MALARIA PROPHYLAXIS
     Dosage: UNK UKN, UNK
     Route: 048
     Dates: start: 201109, end: 201109

REACTIONS (14)
  - Paralysis [Recovering/Resolving]
  - Guillain-Barre syndrome [Recovering/Resolving]
  - Radiculitis lumbosacral [Recovering/Resolving]
  - Nerve root lesion [Recovering/Resolving]
  - Paresis [Recovering/Resolving]
  - Neuropathy peripheral [Recovering/Resolving]
  - Sensory loss [Recovering/Resolving]
  - Urinary incontinence [Recovering/Resolving]
  - Faecal incontinence [Recovering/Resolving]
  - Herpes simplex [Unknown]
  - Depression [Unknown]
  - Mental disorder [Unknown]
  - Uterine leiomyoma [Unknown]
  - Peritoneal adhesions [Unknown]
